FAERS Safety Report 19237534 (Version 1)
Quarter: 2021Q2

REPORT INFORMATION
  Report Type: Spontaneous
  Country: US (occurrence: US)
  Receive Date: 20210510
  Receipt Date: 20210510
  Transmission Date: 20210717
  Serious: No
  Sender: FDA-Public Use
  Company Number: None

PATIENT
  Age: 34 Year
  Sex: Female
  Weight: 88.9 kg

DRUGS (1)
  1. NEXPLANON [Suspect]
     Active Substance: ETONOGESTREL
     Dates: start: 20200228

REACTIONS (4)
  - Asthenia [None]
  - Iron deficiency [None]
  - Heavy menstrual bleeding [None]
  - Abortion spontaneous [None]

NARRATIVE: CASE EVENT DATE: 20210510
